FAERS Safety Report 21750690 (Version 1)
Quarter: 2022Q4

REPORT INFORMATION
  Report Type: Spontaneous
  Country: None (occurrence: US)
  Receive Date: 20221219
  Receipt Date: 20221219
  Transmission Date: 20230113
  Serious: No
  Sender: FDA-Public Use
  Company Number: US-Mission Pharmacal Company-2135979

PATIENT
  Age: 21 Year
  Sex: Female

DRUGS (1)
  1. THIOLA [Suspect]
     Active Substance: TIOPRONIN
     Indication: Congenital cystic kidney disease
     Route: 048
     Dates: start: 20221204

REACTIONS (1)
  - Urinary tract infection [Unknown]
